FAERS Safety Report 25039716 (Version 1)
Quarter: 2025Q1

REPORT INFORMATION
  Report Type: Spontaneous
  Country: PR (occurrence: PR)
  Receive Date: 20250305
  Receipt Date: 20250305
  Transmission Date: 20250408
  Serious: No
  Sender: BRISTOL-MYERS SQUIBB COMPANY
  Company Number: PR-BRISTOL-MYERS SQUIBB COMPANY-2025-032865

PATIENT
  Age: 52 Year
  Sex: Female
  Weight: 71.67 kg

DRUGS (1)
  1. REVLIMID [Suspect]
     Active Substance: LENALIDOMIDE
     Indication: Plasma cell myeloma refractory
     Route: 048
     Dates: start: 202405

REACTIONS (4)
  - Pyrexia [Not Recovered/Not Resolved]
  - Asthenia [Not Recovered/Not Resolved]
  - Cough [Not Recovered/Not Resolved]
  - White blood cell count decreased [Not Recovered/Not Resolved]

NARRATIVE: CASE EVENT DATE: 20250211
